FAERS Safety Report 7540899-3 (Version None)
Quarter: 2011Q2

REPORT INFORMATION
  Report Type: 
  Country: None (occurrence: None)
  Receive Date: 20110610
  Receipt Date: 20110606
  Transmission Date: 20111010
  Serious: Yes (Other)
  Sender: FDA-Public Use
  Company Number: US-PFIZER INC-2011096731

PATIENT
  Sex: Female
  Weight: 76.19 kg

DRUGS (4)
  1. XALATAN [Suspect]
     Indication: INTRAOCULAR PRESSURE INCREASED
  2. ALPHAGAN [Concomitant]
     Dosage: UNK
  3. PROMETHAZINE [Concomitant]
     Dosage: UNK
  4. XALATAN [Suspect]
     Indication: GLAUCOMA
     Dosage: 1 GTT, 1X/DAY IN LEFT EYE
     Route: 047

REACTIONS (3)
  - OCULAR HYPERAEMIA [None]
  - INTRAOCULAR PRESSURE INCREASED [None]
  - EYE IRRITATION [None]
